FAERS Safety Report 10855956 (Version 1)
Quarter: 2015Q1

REPORT INFORMATION
  Report Type: Spontaneous
  Country: FR (occurrence: FR)
  Receive Date: 20150223
  Receipt Date: 20150223
  Transmission Date: 20150721
  Serious: Yes (Hospitalization)
  Sender: FDA-Public Use
  Company Number: FR-GE HEALTHCARE MEDICAL DIAGNOSTICS-OMPQ-PR-1502S-0143

PATIENT
  Age: 70 Year
  Sex: Male

DRUGS (9)
  1. CRESTOR [Concomitant]
     Active Substance: ROSUVASTATIN CALCIUM
  2. SPIRIVA [Concomitant]
     Active Substance: TIOTROPIUM BROMIDE MONOHYDRATE
     Dates: start: 20141029, end: 20141209
  3. OMNIPAQUE [Suspect]
     Active Substance: IOHEXOL
     Indication: PRODUCT USED FOR UNKNOWN INDICATION
     Route: 042
     Dates: start: 20141031, end: 20141031
  4. SEROPLEX [Concomitant]
     Active Substance: ESCITALOPRAM OXALATE
  5. KARDEGIC [Concomitant]
     Active Substance: ASPIRIN LYSINE
  6. COVERAM [Concomitant]
     Active Substance: AMLODIPINE\PERINDOPRIL
  7. SEREVENT [Concomitant]
     Active Substance: SALMETEROL XINAFOATE
     Dates: start: 20141029
  8. OMNIPAQUE [Suspect]
     Active Substance: IOHEXOL
     Indication: DIAGNOSTIC PROCEDURE
  9. LASILIX [Concomitant]
     Active Substance: FUROSEMIDE

REACTIONS (1)
  - Rash maculo-papular [Recovered/Resolved]

NARRATIVE: CASE EVENT DATE: 20141102
